FAERS Safety Report 11089419 (Version 1)
Quarter: 2015Q2

REPORT INFORMATION
  Report Type: Spontaneous
  Country: CA (occurrence: CA)
  Receive Date: 20150505
  Receipt Date: 20150505
  Transmission Date: 20150821
  Serious: Yes (Other)
  Sender: FDA-Public Use
  Company Number: CA-GILEAD-2013-0072669

PATIENT
  Age: 50 Year
  Sex: Female

DRUGS (8)
  1. AMIODARONE [Concomitant]
     Active Substance: AMIODARONE
  2. TOLOXIN [Concomitant]
     Active Substance: DIGOXIN
     Indication: PRODUCT USED FOR UNKNOWN INDICATION
     Dosage: UNK
  3. AMBRISENTAN [Suspect]
     Active Substance: AMBRISENTAN
     Indication: CONGENITAL PULMONARY HYPERTENSION
     Dosage: 10MG PER DAY
     Route: 048
     Dates: start: 20120330
  4. DIGOXIN. [Concomitant]
     Active Substance: DIGOXIN
  5. K-DUR [Concomitant]
     Active Substance: POTASSIUM CHLORIDE
     Indication: PRODUCT USED FOR UNKNOWN INDICATION
     Dosage: UNK
  6. COUMADIN [Concomitant]
     Active Substance: WARFARIN SODIUM
  7. PANTOLOC                           /01263204/ [Concomitant]
     Active Substance: PANTOPRAZOLE SODIUM
  8. FUROSEMIDE. [Concomitant]
     Active Substance: FUROSEMIDE
     Indication: PRODUCT USED FOR UNKNOWN INDICATION
     Dosage: UNK

REACTIONS (5)
  - Eye haemorrhage [Not Recovered/Not Resolved]
  - Anosmia [Not Recovered/Not Resolved]
  - Sinusitis [Unknown]
  - Ageusia [Not Recovered/Not Resolved]
  - Vision blurred [Not Recovered/Not Resolved]

NARRATIVE: CASE EVENT DATE: 201302
